FAERS Safety Report 25795986 (Version 1)
Quarter: 2025Q3

REPORT INFORMATION
  Report Type: Spontaneous
  Country: US (occurrence: US)
  Receive Date: 20250912
  Receipt Date: 20250912
  Transmission Date: 20251021
  Serious: Yes (Other)
  Sender: PFIZER
  Company Number: US-PFIZER INC-202500179575

PATIENT
  Age: 56 Year
  Sex: Male

DRUGS (1)
  1. CIBINQO [Suspect]
     Active Substance: ABROCITINIB
     Dosage: 100 MG, 1X/DAY
     Route: 048
     Dates: end: 202508

REACTIONS (2)
  - Post procedural infection [Unknown]
  - Gingivitis [Unknown]

NARRATIVE: CASE EVENT DATE: 20250801
